FAERS Safety Report 9419812 (Version 1)
Quarter: 2013Q3

REPORT INFORMATION
  Report Type: Spontaneous
  Country: US (occurrence: US)
  Receive Date: 20130725
  Receipt Date: 20130725
  Transmission Date: 20140515
  Serious: Yes (Life-Threatening, Hospitalization)
  Sender: FDA-Public Use
  Company Number: US-MYLANLABS-2013S1015636

PATIENT
  Age: 43 Year
  Sex: Female

DRUGS (2)
  1. CLOZAPINE [Suspect]
     Dosage: 450 MG/D
     Route: 048
  2. AZITHROMYCIN [Concomitant]
     Dosage: 500 MG/D
     Route: 042

REACTIONS (5)
  - Myoclonus [Unknown]
  - Salivary hypersecretion [Unknown]
  - Hypotension [Unknown]
  - Depressed level of consciousness [Unknown]
  - Toxicity to various agents [Unknown]
